FAERS Safety Report 24381495 (Version 2)
Quarter: 2024Q4

REPORT INFORMATION
  Report Type: Spontaneous
  Country: JP (occurrence: JP)
  Receive Date: 20241001
  Receipt Date: 20241219
  Transmission Date: 20250115
  Serious: Yes (Death, Hospitalization, Other)
  Sender: AMGEN
  Company Number: JP-Vifor (International) Inc.-VIT-2024-01567

PATIENT
  Age: 78 Year
  Sex: Female
  Weight: 47.9 kg

DRUGS (20)
  1. TAVNEOS [Suspect]
     Active Substance: AVACOPAN
     Indication: Microscopic polyangiitis
     Dosage: 60 MILLIGRAM, QD
     Route: 048
     Dates: start: 20230420, end: 20230615
  2. SULFAMETHOXAZOLE\TRIMETHOPRIM [Concomitant]
     Active Substance: SULFAMETHOXAZOLE\TRIMETHOPRIM
     Indication: Antifungal prophylaxis
     Dosage: UNK 0.33, QW
     Route: 048
     Dates: start: 20220709, end: 20230615
  3. DAYVIGO [Concomitant]
     Active Substance: LEMBOREXANT
     Indication: Insomnia
     Dosage: 5 MILLIGRAM, QD
     Route: 048
     Dates: start: 20230627, end: 20230714
  4. MINODRONIC ACID [Concomitant]
     Active Substance: MINODRONIC ACID
     Indication: Osteoporosis
     Dosage: 50 MILLIGRAM, QMO
     Route: 048
     Dates: start: 20220324, end: 20230615
  5. HUMULIN R [Concomitant]
     Active Substance: INSULIN HUMAN
     Indication: Steroid diabetes
     Dosage: 0.04 MILLILITER, QD
     Route: 040
     Dates: start: 20230630, end: 20230703
  6. HUMULIN R [Concomitant]
     Active Substance: INSULIN HUMAN
     Dosage: 0.05 MILLILITER, QD
     Route: 040
     Dates: start: 20230704, end: 20230714
  7. ADALAT CC [Concomitant]
     Active Substance: NIFEDIPINE
     Indication: Hypertension
     Dosage: 40 MILLIGRAM, QD
     Route: 048
     Dates: end: 20230615
  8. ADALAT CC [Concomitant]
     Active Substance: NIFEDIPINE
     Dosage: 40 MILLIGRAM, QD
     Route: 048
     Dates: start: 20230617, end: 20230624
  9. CRESTOR [Concomitant]
     Active Substance: ROSUVASTATIN CALCIUM
     Indication: Dyslipidaemia
     Dosage: 2.5 MILLIGRAM, QD
     Route: 048
     Dates: end: 20230615
  10. CRESTOR [Concomitant]
     Active Substance: ROSUVASTATIN CALCIUM
     Dosage: 2.5 MILLIGRAM, QD
     Route: 048
     Dates: start: 20230617, end: 20230624
  11. ONEALFA [Concomitant]
     Active Substance: ALFACALCIDOL
     Indication: Osteoporosis
     Dosage: 0.25 MICROGRAM, QD
     Route: 048
     Dates: start: 20230424, end: 20230615
  12. ONEALFA [Concomitant]
     Active Substance: ALFACALCIDOL
     Dosage: 0.25 MICROGRAM, QD
     Route: 048
     Dates: start: 20230617, end: 20230624
  13. PREDNISOLONE [Concomitant]
     Active Substance: PREDNISOLONE
     Indication: Microscopic polyangiitis
     Dosage: 20 MILLIGRAM, QD
     Route: 048
     Dates: start: 20230526, end: 20230629
  14. PREDNISOLONE [Concomitant]
     Active Substance: PREDNISOLONE
     Dosage: 17.5 MILLIGRAM, QD
     Route: 048
     Dates: start: 20230630, end: 20230714
  15. BEZAFIBRATE [Concomitant]
     Active Substance: BEZAFIBRATE
     Indication: Dyslipidaemia
     Dosage: 200 MILLIGRAM, QD
     Route: 048
     Dates: start: 20230704, end: 20230714
  16. LINAGLIPTIN [Concomitant]
     Active Substance: LINAGLIPTIN
     Indication: Steroid diabetes
     Dosage: 5 MILLIGRAM, QD
     Route: 048
     Dates: start: 20230417, end: 20230615
  17. VONOPRAZAN FUMARATE [Concomitant]
     Active Substance: VONOPRAZAN FUMARATE
     Indication: Gastrooesophageal reflux disease
     Dosage: 10 MILLIGRAM, QD
     Route: 048
     Dates: start: 20220228, end: 20230615
  18. VONOPRAZAN FUMARATE [Concomitant]
     Active Substance: VONOPRAZAN FUMARATE
     Dosage: 10 MILLIGRAM, QD
     Route: 048
     Dates: start: 20230617, end: 20230624
  19. MITIGLINIDE [Concomitant]
     Active Substance: MITIGLINIDE
     Indication: Steroid diabetes
     Dosage: 10 MILLIGRAM
     Route: 048
     Dates: start: 20230529, end: 20230615
  20. COLESTILAN CHLORIDE [Concomitant]
     Active Substance: COLESTILAN CHLORIDE
     Indication: Dyslipidaemia
     Dosage: 1.81 GRAM
     Route: 048
     Dates: start: 20230712, end: 20230714

REACTIONS (8)
  - Gastrointestinal haemorrhage [Fatal]
  - Haematemesis [Fatal]
  - Hepatitis acute [Not Recovered/Not Resolved]
  - Jaundice [Not Recovered/Not Resolved]
  - Oesophageal candidiasis [Not Recovered/Not Resolved]
  - Pyrexia [Recovered/Resolved]
  - Urinary tract infection [Recovered/Resolved]
  - Nausea [Not Recovered/Not Resolved]

NARRATIVE: CASE EVENT DATE: 20230601
